FAERS Safety Report 9068279 (Version 1)
Quarter: 2013Q1

REPORT INFORMATION
  Report Type: Spontaneous
  Country: ES (occurrence: ES)
  Receive Date: 20130206
  Receipt Date: 20130206
  Transmission Date: 20140127
  Serious: Yes (Life-Threatening, Hospitalization)
  Sender: FDA-Public Use
  Company Number: ES-JNJFOC-20130116380

PATIENT
  Age: 82 Year
  Sex: Female
  Weight: 74.97 kg

DRUGS (8)
  1. XARELTO [Suspect]
     Indication: CEREBROVASCULAR ACCIDENT PROPHYLAXIS
     Route: 048
     Dates: start: 20121001
  2. XARELTO [Suspect]
     Indication: ATRIAL FIBRILLATION
     Route: 048
     Dates: start: 20121001
  3. PRAMIPEXOLE [Suspect]
     Indication: RESTLESS LEGS SYNDROME
     Route: 048
     Dates: start: 201202
  4. DIGOXINE [Suspect]
     Indication: CARDIAC FAILURE
     Route: 048
     Dates: start: 201001
  5. RAMIPRIL [Suspect]
     Indication: CARDIAC FAILURE
     Route: 048
     Dates: start: 201110
  6. PRAVASTATIN SODIUM [Suspect]
     Indication: HYPERLIPIDAEMIA
     Route: 048
     Dates: start: 201001
  7. BECLOMETASONE DIPROPIONATE [Suspect]
     Indication: ASTHMA
     Route: 055
     Dates: start: 201204
  8. FUROSEMIDE SODIUM [Suspect]
     Indication: CARDIAC FAILURE
     Route: 048
     Dates: start: 201001

REACTIONS (1)
  - Septic shock [Unknown]
